FAERS Safety Report 19645826 (Version 1)
Quarter: 2021Q3

REPORT INFORMATION
  Report Type: Spontaneous
  Country: US (occurrence: US)
  Receive Date: 20210730
  Receipt Date: 20210730
  Transmission Date: 20211014
  Serious: Yes (Hospitalization)
  Sender: FDA-Public Use
  Company Number: None

PATIENT
  Age: 56 Year
  Sex: Male

DRUGS (1)
  1. REVLIMID [Suspect]
     Active Substance: LENALIDOMIDE
     Indication: PLASMA CELL MYELOMA
     Route: 048
     Dates: start: 20201214

REACTIONS (7)
  - Tachypnoea [None]
  - Pyrexia [None]
  - Tachycardia [None]
  - Pneumonia [None]
  - Systemic inflammatory response syndrome [None]
  - Therapy interrupted [None]
  - Sepsis [None]

NARRATIVE: CASE EVENT DATE: 20210717
